FAERS Safety Report 25415084 (Version 2)
Quarter: 2025Q3

REPORT INFORMATION
  Report Type: Spontaneous
  Country: US (occurrence: US)
  Receive Date: 20250609
  Receipt Date: 20250918
  Transmission Date: 20251021
  Serious: No
  Sender: TAKEDA
  Company Number: US-TAKEDA-2025TUS053110

PATIENT
  Sex: Female
  Weight: 58.96 kg

DRUGS (9)
  1. VOQUEZNA [Suspect]
     Active Substance: VONOPRAZAN FUMARATE
     Indication: Gastrooesophageal reflux disease
     Dosage: 20 MILLIGRAM, QD
     Dates: start: 20250408
  2. LISDEXAMFETAMINE DIMESYLATE [Suspect]
     Active Substance: LISDEXAMFETAMINE DIMESYLATE
     Indication: Product used for unknown indication
  3. LAMOTRIGINE [Concomitant]
     Active Substance: LAMOTRIGINE
  4. TRETINOIN [Concomitant]
     Active Substance: TRETINOIN
  5. NORGESTREL/ETHINYL ESTRADIOL [Concomitant]
     Active Substance: ETHINYL ESTRADIOL\NORGESTREL
  6. FAMOTIDINE [Concomitant]
     Active Substance: FAMOTIDINE
  7. ALDACTONE [Concomitant]
     Active Substance: SPIRONOLACTONE
  8. VILAZODONE [Concomitant]
     Active Substance: VILAZODONE
  9. AZELAIC ACID [Concomitant]
     Active Substance: AZELAIC ACID

REACTIONS (1)
  - Amnesia [Recovering/Resolving]
